FAERS Safety Report 20708349 (Version 1)
Quarter: 2022Q2

REPORT INFORMATION
  Report Type: Spontaneous
  Country: US (occurrence: US)
  Receive Date: 20220414
  Receipt Date: 20220414
  Transmission Date: 20220721
  Serious: Yes (Other)
  Sender: FDA-Public Use
  Company Number: US-AUROBINDO-AUR-APL-2022-012787

PATIENT
  Age: 62 Year
  Sex: Female

DRUGS (2)
  1. ARSENIC TRIOXIDE [Suspect]
     Active Substance: ARSENIC TRIOXIDE
     Indication: Acute promyelocytic leukaemia
     Dosage: 0.5 MILLIGRAM/KILOGRAM (5 DAYS PER  WEEK)
     Route: 065
  2. TRETINOIN [Suspect]
     Active Substance: TRETINOIN
     Indication: Acute promyelocytic leukaemia
     Dosage: 45 MG/M2/DAY FOR 5 DAYS PER WEEK
     Route: 065

REACTIONS (2)
  - Differentiation syndrome [Recovered/Resolved]
  - Myopericarditis [Recovered/Resolved]
